FAERS Safety Report 22270448 (Version 1)
Quarter: 2023Q2

REPORT INFORMATION
  Report Type: Spontaneous
  Country: GB (occurrence: GB)
  Receive Date: 20230501
  Receipt Date: 20230501
  Transmission Date: 20230722
  Serious: Yes (Other)
  Sender: FDA-Public Use
  Company Number: GB-VER-202300014

PATIENT
  Sex: Male

DRUGS (1)
  1. TRIPTORELIN PAMOATE [Suspect]
     Active Substance: TRIPTORELIN PAMOATE
     Indication: Product used for unknown indication
     Route: 065

REACTIONS (5)
  - Metastases to lymph nodes [Unknown]
  - Metastatic neoplasm [Unknown]
  - Pain [Unknown]
  - Prostate cancer [Unknown]
  - Retroperitoneal lymphadenopathy [Unknown]
